FAERS Safety Report 10027102 (Version 1)
Quarter: 2014Q1

REPORT INFORMATION
  Report Type: Report from Study
  Country: US (occurrence: US)
  Receive Date: 20140321
  Receipt Date: 20140321
  Transmission Date: 20141002
  Serious: Yes (Other)
  Sender: FDA-Public Use
  Company Number: US-ROCHE-1364540

PATIENT
  Sex: Female
  Weight: 20.8 kg

DRUGS (13)
  1. CELLCEPT [Suspect]
     Indication: RENAL FAILURE CHRONIC
     Route: 048
  2. CATAPRES [Concomitant]
     Route: 061
  3. EPOGEN [Concomitant]
     Route: 058
  4. FOSRENOL [Concomitant]
     Route: 048
  5. LANSOPRAZOLE [Concomitant]
     Route: 048
  6. MEPRON (UNITED STATES) [Concomitant]
     Route: 048
  7. PREDNISONE [Concomitant]
     Route: 048
  8. XOPENEX HFA [Concomitant]
     Route: 055
  9. ZOFRAN [Concomitant]
     Indication: VOMITING
     Route: 048
  10. ZOFRAN [Concomitant]
     Indication: NAUSEA
  11. CALCITRIOL [Concomitant]
     Route: 048
  12. HEPARIN [Concomitant]
     Route: 065
  13. LISINOPRIL [Concomitant]
     Route: 048

REACTIONS (3)
  - Blood pressure increased [Unknown]
  - Hypocalcaemia [Unknown]
  - Blood phosphorus increased [Unknown]
